FAERS Safety Report 17688814 (Version 1)
Quarter: 2020Q2

REPORT INFORMATION
  Report Type: Spontaneous
  Country: US (occurrence: US)
  Receive Date: 20200418
  Receipt Date: 20200418
  Transmission Date: 20200714
  Serious: Yes (Hospitalization)
  Sender: FDA-Public Use
  Company Number: None

PATIENT
  Sex: Male
  Weight: 73.8 kg

DRUGS (8)
  1. CYCLOPHOSPHAMIDE. [Suspect]
     Active Substance: CYCLOPHOSPHAMIDE
  2. CYTARABINE. [Suspect]
     Active Substance: CYTARABINE
  3. DAUNORUBICIN [Suspect]
     Active Substance: DAUNORUBICIN
  4. VINCRISTINE SULFATE. [Suspect]
     Active Substance: VINCRISTINE SULFATE
  5. DEXAMETHASON [Suspect]
     Active Substance: DEXAMETHASONE
  6. METHOTREXATE. [Concomitant]
     Active Substance: METHOTREXATE
  7. MERCAPTOPURINE. [Suspect]
     Active Substance: MERCAPTOPURINE
  8. RITUXIMAB (MOAB C2B8 ANTI CD20, CHIMERIC) [Suspect]
     Active Substance: RITUXIMAB

REACTIONS (6)
  - Abdominal pain [None]
  - Febrile neutropenia [None]
  - Colitis [None]
  - Chills [None]
  - Escherichia infection [None]
  - Urinary tract infection [None]

NARRATIVE: CASE EVENT DATE: 20200310
